FAERS Safety Report 10171535 (Version 1)
Quarter: 2014Q2

REPORT INFORMATION
  Report Type: Spontaneous
  Country: FR (occurrence: None)
  Receive Date: 20140512
  Receipt Date: 20140512
  Transmission Date: 20141212
  Serious: Yes (Other)
  Sender: FDA-Public Use
  Company Number: SYM-2014-20531

PATIENT
  Age: 68 Year
  Sex: Male

DRUGS (14)
  1. FLAGYL (METRONIDAZOLE) (METRONIDAZOLE) [Suspect]
     Indication: PRODUCT USED FOR UNKNOWN INDICATION
     Route: 048
     Dates: start: 20140315, end: 20140330
  2. TAVANIC [Suspect]
     Indication: PRODUCT USED FOR UNKNOWN INDICATION
     Route: 048
     Dates: start: 20140315, end: 20140320
  3. LEVOFLOXACIN (LEVOFLOXACIN) [Suspect]
     Indication: PRODUCT USED FOR UNKNOWN INDICATION
     Route: 048
     Dates: start: 20140320, end: 20140408
  4. ZYTIGA (ABIRATERONE ACETATE) (ABIRATERONE ACETATE) [Concomitant]
  5. TARDYFERON (FERROUS SULFATE)( FERROUS SULFATE) [Concomitant]
  6. LASILIX (FUROSEMIDE) (FUROSEMIDE) [Concomitant]
  7. ALDACTONE (SPIRONOLACTONE) (SPIRONOLACTONE) [Concomitant]
  8. PHOSPHONEUROS (PHOSPHONEUROS) (MAGNESIUM GLYCEROPHOSPHATE, SODIUM PHOSPHATE DIBASIC, PHOSPHORIC ACID, CALCIUM PHOSPHATE DIBASIC) [Concomitant]
  9. CALCIDOSE (CALCIUM CARBONATE) (CALCIUM CARBONATE) [Concomitant]
  10. DIFFU K (POTASSIUM CHLORIDE) (POTASSIUM CHLORIDE) [Concomitant]
  11. PROPRANOLOL (PROPRANOLOL) [Concomitant]
  12. DUROGESIC (FENTANYL) (FENTANYL) [Concomitant]
  13. VANCOMYCIN (VANCOMYCIN) (VANCOMYCIN) [Concomitant]
  14. GENTAMICIN ^PANPHARMA^ (GENTAMICIN SULFATE)(GENTAMIIIN SULFATE) [Concomitant]

REACTIONS (8)
  - Eosinophilia [None]
  - Rash [None]
  - Escherichia sepsis [None]
  - Device related infection [None]
  - Rash maculo-papular [None]
  - Vascular purpura [None]
  - Erythema [None]
  - Renal impairment [None]
